FAERS Safety Report 8479877-9 (Version None)
Quarter: 2012Q2

REPORT INFORMATION
  Report Type: 
  Country: None (occurrence: None)
  Receive Date: 20120629
  Receipt Date: 20120618
  Transmission Date: 20120825
  Serious: Yes (Hospitalization)
  Sender: FDA-Public Use
  Company Number: JP-VERTEX PHARMACEUTICALS INC.-AE-2012-009255

PATIENT
  Age: 45 Year
  Sex: Male

DRUGS (14)
  1. REBETOL [Concomitant]
     Indication: HEPATITIS C
     Route: 048
     Dates: start: 20120308
  2. VOLTAREN [Concomitant]
     Route: 054
     Dates: start: 20120308
  3. OMEPRAZOLE [Concomitant]
     Route: 048
  4. PEGINTERFERON ALFA-2B [Concomitant]
     Indication: HEPATITIS C
     Route: 058
     Dates: start: 20120308, end: 20120515
  5. RIZE [Concomitant]
     Route: 048
  6. ALLOPURINOL [Concomitant]
     Route: 048
  7. VOLTAREN [Concomitant]
     Route: 054
  8. TELAVIC (TELAPREVIR) [Suspect]
     Indication: HEPATITIS C
     Route: 048
     Dates: start: 20120308, end: 20120518
  9. URSODIOL [Concomitant]
     Route: 048
  10. REBETOL [Concomitant]
     Route: 048
     Dates: start: 20120516, end: 20120522
  11. VOLTAREN [Concomitant]
     Route: 054
  12. CALONLAL [Concomitant]
     Dates: start: 20120309
  13. MOTILIUM [Concomitant]
     Dates: start: 20120313
  14. REBETOL [Concomitant]
     Route: 048
     Dates: end: 20120515

REACTIONS (3)
  - DRUG ERUPTION [None]
  - ANAEMIA [None]
  - NAUSEA [None]
